FAERS Safety Report 11922414 (Version 4)
Quarter: 2016Q1

REPORT INFORMATION
  Report Type: Report from Study
  Country: ES (occurrence: ES)
  Receive Date: 20160115
  Receipt Date: 20160203
  Transmission Date: 20160526
  Serious: Yes (Death, Life-Threatening, Other)
  Sender: FDA-Public Use
  Company Number: ES-ABBVIE-15P-144-1508202-00

PATIENT
  Age: 82 Year
  Sex: Male

DRUGS (1)
  1. DUODOPA [Suspect]
     Active Substance: CARBIDOPA\LEVODOPA
     Indication: PARKINSON^S DISEASE
     Route: 050
     Dates: start: 201401

REACTIONS (6)
  - Gastrointestinal infection [Unknown]
  - Renal disorder [Unknown]
  - Multiple organ dysfunction syndrome [Fatal]
  - Colon cancer [Unknown]
  - Functional gastrointestinal disorder [Unknown]
  - Haematochezia [Unknown]

NARRATIVE: CASE EVENT DATE: 201510
